FAERS Safety Report 4355006-8 (Version None)
Quarter: 2004Q2

REPORT INFORMATION
  Report Type: 
  Country: None (occurrence: None)
  Receive Date: 20040504
  Receipt Date: 20040422
  Transmission Date: 20050107
  Serious: Yes (Hospitalization)
  Sender: FDA-Public Use
  Company Number: 206011

PATIENT
  Age: 13 Year
  Sex: Male
  Weight: 42.6 kg

DRUGS (2)
  1. NUTROPIN AQ [Suspect]
     Indication: HYPOPITUITARISM
     Dosage: 1.2 MG, QD, SUBCUTANEOUS
     Route: 058
     Dates: start: 20030915, end: 20031102
  2. DILANTIN [Concomitant]

REACTIONS (11)
  - ACTIVATED PARTIAL THROMBOPLASTIN TIME PROLONGED [None]
  - BLOOD FIBRINOGEN DECREASED [None]
  - CEREBRAL INFARCTION [None]
  - COAGULOPATHY [None]
  - CONVULSION [None]
  - DRUG LEVEL DECREASED [None]
  - ENCEPHALOMALACIA [None]
  - FACTOR V LEIDEN MUTATION [None]
  - HEMIPARESIS [None]
  - PROTHROMBIN TIME PROLONGED [None]
  - SOMNOLENCE [None]
